FAERS Safety Report 19909818 (Version 1)
Quarter: 2021Q4

REPORT INFORMATION
  Report Type: Spontaneous
  Country: US (occurrence: US)
  Receive Date: 20211003
  Receipt Date: 20211003
  Transmission Date: 20220303
  Serious: No
  Sender: FDA-Public Use
  Company Number: US-SA-SAC20210928000731

PATIENT
  Sex: Female

DRUGS (1)
  1. AUBAGIO [Suspect]
     Active Substance: TERIFLUNOMIDE
     Indication: Multiple sclerosis
     Dosage: 14 MG, QD
     Route: 048
     Dates: start: 20181023

REACTIONS (6)
  - Insomnia [Unknown]
  - Muscular weakness [Unknown]
  - Pain in extremity [Unknown]
  - Blood pressure increased [Unknown]
  - Alopecia [Unknown]
  - Arthralgia [Unknown]
